FAERS Safety Report 12772275 (Version 1)
Quarter: 2016Q3

REPORT INFORMATION
  Report Type: Spontaneous
  Country: SK (occurrence: SK)
  Receive Date: 20160922
  Receipt Date: 20160922
  Transmission Date: 20161109
  Serious: Yes (Death, Other)
  Sender: FDA-Public Use
  Company Number: SK-ARIAD PHARMACEUTICALS, INC-2016SK006992

PATIENT
  Sex: Female

DRUGS (1)
  1. ICLUSIG [Suspect]
     Active Substance: PONATINIB
     Indication: BLAST CRISIS IN MYELOGENOUS LEUKAEMIA
     Dosage: 45 MG, QD
     Route: 048
     Dates: start: 20150806

REACTIONS (5)
  - Myeloblast count decreased [Unknown]
  - Blast cell crisis [Fatal]
  - Platelet count decreased [Unknown]
  - Hypertension [Unknown]
  - White blood cell count decreased [Unknown]
